FAERS Safety Report 6969484-9 (Version None)
Quarter: 2010Q3

REPORT INFORMATION
  Report Type: 
  Country: None (occurrence: None)
  Receive Date: 20100907
  Receipt Date: 20100823
  Transmission Date: 20110219
  Serious: Yes (Hospitalization, Disabling)
  Sender: FDA-Public Use
  Company Number: HU-GENENTECH-306254

PATIENT
  Sex: Male
  Weight: 75 kg

DRUGS (11)
  1. RANIBIZUMAB [Suspect]
     Indication: DIABETIC RETINAL OEDEMA
     Dosage: UNK
     Route: 031
     Dates: start: 20091125
  2. RANIBIZUMAB [Suspect]
     Dosage: UNK
     Route: 031
     Dates: start: 20100526
  3. DOXIUM [Concomitant]
     Indication: PRODUCT USED FOR UNKNOWN INDICATION
  4. DIAPREL [Concomitant]
     Indication: PRODUCT USED FOR UNKNOWN INDICATION
  5. PRENESSA [Concomitant]
     Indication: PRODUCT USED FOR UNKNOWN INDICATION
  6. INDAPAMIDE [Concomitant]
     Indication: PRODUCT USED FOR UNKNOWN INDICATION
  7. METOPROLOL TARTRATE [Concomitant]
     Indication: PRODUCT USED FOR UNKNOWN INDICATION
  8. CARDURA [Concomitant]
     Indication: PRODUCT USED FOR UNKNOWN INDICATION
  9. SYNCUMAR [Concomitant]
     Indication: PRODUCT USED FOR UNKNOWN INDICATION
  10. CYMBALTA [Concomitant]
     Indication: PRODUCT USED FOR UNKNOWN INDICATION
  11. NIMESULIDE [Concomitant]
     Indication: PRODUCT USED FOR UNKNOWN INDICATION

REACTIONS (2)
  - CELLULITIS [None]
  - OSTEITIS [None]
